FAERS Safety Report 8407517-3 (Version None)
Quarter: 2012Q2

REPORT INFORMATION
  Report Type: 
  Country: None (occurrence: None)
  Receive Date: 20120604
  Receipt Date: 20120529
  Transmission Date: 20120825
  Serious: Yes (Life-Threatening, Hospitalization, Disabling, Other)
  Sender: FDA-Public Use
  Company Number: FR-ASTRAZENECA-2012SE21167

PATIENT
  Sex: Male
  Weight: 87 kg

DRUGS (4)
  1. CLOZAPINE [Suspect]
     Indication: SCHIZOPHRENIA
     Dosage: 300 MG TO 400 MG PER DAY
     Route: 048
     Dates: start: 20120112, end: 20120119
  2. UNSPECIFIED MEDICATION THAT DECREASE THE INTESTINAL MOTILITY [Concomitant]
     Indication: DIARRHOEA
     Route: 048
     Dates: start: 20120201
  3. QUETIAPINE FUMARATE [Suspect]
     Indication: SCHIZOPHRENIA
     Route: 048
     Dates: start: 20120206, end: 20120305
  4. TRANXENE [Concomitant]
     Indication: AGITATION
     Route: 048
     Dates: start: 20120202, end: 20120305

REACTIONS (1)
  - INTESTINAL ISCHAEMIA [None]
